FAERS Safety Report 4566860-9 (Version None)
Quarter: 2005Q1

REPORT INFORMATION
  Report Type: 
  Country: None (occurrence: None)
  Receive Date: 20050201
  Receipt Date: 20020418
  Transmission Date: 20050727
  Serious: Yes (Other)
  Sender: FDA-Public Use
  Company Number: US-BRISTOL-MYERS SQUIBB COMPANY-11841426

PATIENT
  Age: 35 Year
  Sex: Male

DRUGS (7)
  1. STADOL [Suspect]
     Indication: HEADACHE
     Route: 045
     Dates: start: 19940912, end: 20000301
  2. HYDROCODONE + ACETAMINOPHEN [Concomitant]
  3. CARISOPRODOL [Concomitant]
  4. NEURONTIN [Concomitant]
  5. AMITRIPTYLINE [Concomitant]
  6. ULTRAM [Concomitant]
  7. PHENERGAN [Concomitant]

REACTIONS (1)
  - DEPENDENCE [None]
